FAERS Safety Report 6443079-8 (Version None)
Quarter: 2009Q4

REPORT INFORMATION
  Report Type: 
  Country: None (occurrence: None)
  Receive Date: 20091117
  Receipt Date: 20091105
  Transmission Date: 20100525
  Serious: Yes (Other)
  Sender: FDA-Public Use
  Company Number: PHHY2009DE23988

PATIENT
  Sex: Female
  Weight: 56 kg

DRUGS (2)
  1. ESTRADERM [Suspect]
     Dosage: 50 UNK, UNK
     Route: 062
     Dates: start: 20090301
  2. IODINE [Concomitant]

REACTIONS (6)
  - BILIARY TRACT DISORDER [None]
  - GASTRIC DISORDER [None]
  - HUNGER [None]
  - HYPERPHAGIA [None]
  - HYPOTHYROIDISM [None]
  - WEIGHT INCREASED [None]
